FAERS Safety Report 5661702-2 (Version None)
Quarter: 2008Q1

REPORT INFORMATION
  Report Type: 
  Country: None (occurrence: None)
  Receive Date: 20080312
  Receipt Date: 20080305
  Transmission Date: 20080703
  Serious: Yes (Hospitalization)
  Sender: FDA-Public Use
  Company Number: A0713554A

PATIENT
  Age: 75 Year
  Sex: Male

DRUGS (11)
  1. ADVAIR DISKUS 100/50 [Suspect]
     Indication: CHRONIC OBSTRUCTIVE PULMONARY DISEASE
     Dosage: 1PUFF TWICE PER DAY
     Route: 055
     Dates: start: 20050101
  2. SPIRIVA [Concomitant]
  3. PLAVIX [Concomitant]
  4. VYTORIN [Concomitant]
  5. COREG [Concomitant]
  6. TUSSINEX [Concomitant]
  7. DIOVAN [Concomitant]
  8. ASPIRIN [Concomitant]
  9. SINGULAIR [Concomitant]
  10. FOSAMAX [Concomitant]
  11. DUONEB [Concomitant]

REACTIONS (5)
  - CONSTIPATION [None]
  - DRY EYE [None]
  - DRY MOUTH [None]
  - MYOCARDIAL INFARCTION [None]
  - PULMONARY FUNCTION TEST DECREASED [None]
